FAERS Safety Report 6390262-6 (Version None)
Quarter: 2009Q4

REPORT INFORMATION
  Report Type: 
  Country: None (occurrence: None)
  Receive Date: 20091005
  Receipt Date: 20091005
  Transmission Date: 20100525
  Serious: Yes (Hospitalization)
  Sender: FDA-Public Use
  Company Number: None

PATIENT
  Age: 46 Year
  Sex: Male
  Weight: 74 kg

DRUGS (2)
  1. LISINOPRIL [Suspect]
     Indication: HYPERTENSION
     Dosage: 5 MG EVERY DAY PO
     Route: 048
     Dates: start: 20070921, end: 20090920
  2. LEVETIRACETAM [Suspect]
     Indication: CONVULSION
     Dosage: 1000 MG BID PO
     Route: 048
     Dates: start: 20090919, end: 20090920

REACTIONS (10)
  - ALANINE AMINOTRANSFERASE INCREASED [None]
  - ANGIOEDEMA [None]
  - ASPARTATE AMINOTRANSFERASE INCREASED [None]
  - HEPATITIS ALCOHOLIC [None]
  - HEPATOTOXICITY [None]
  - LIP SWELLING [None]
  - PARAESTHESIA [None]
  - SWELLING [None]
  - SWELLING FACE [None]
  - TREATMENT NONCOMPLIANCE [None]
